FAERS Safety Report 6247140-2 (Version None)
Quarter: 2009Q2

REPORT INFORMATION
  Report Type: 
  Country: None (occurrence: None)
  Receive Date: 20090626
  Receipt Date: 20090619
  Transmission Date: 20091009
  Serious: Yes (Death)
  Sender: FDA-Public Use
  Company Number: AU-AVENTIS-200915756GDDC

PATIENT
  Age: 79 Year
  Sex: Male

DRUGS (6)
  1. ARAVA [Suspect]
     Indication: RHEUMATOID ARTHRITIS
     Dates: start: 19991231, end: 20080201
  2. METHOTREXATE [Concomitant]
     Dosage: DOSE: UNK
  3. FOLIC ACID [Concomitant]
     Dosage: DOSE: UNK
  4. ACETAMINOPHEN [Concomitant]
     Dosage: DOSE: UNK
  5. ACTONEL WITH CALCIUM (COPACKAGED) [Concomitant]
     Indication: OSTEOPOROSIS
     Dosage: DOSE: UNK
  6. ADALAT CC [Concomitant]

REACTIONS (1)
  - CARDIAC DISORDER [None]
